FAERS Safety Report 21462490 (Version 2)
Quarter: 2022Q4

REPORT INFORMATION
  Report Type: Report from Study
  Country: US (occurrence: US)
  Receive Date: 20221016
  Receipt Date: 20221104
  Transmission Date: 20230112
  Serious: Yes (Hospitalization)
  Sender: FDA-Public Use
  Company Number: US-AMGEN-USACT2022174851

PATIENT
  Age: 64 Year
  Sex: Male
  Weight: 100.1 kg

DRUGS (15)
  1. CARFILZOMIB [Suspect]
     Active Substance: CARFILZOMIB
     Indication: Plasma cell myeloma
     Dosage: 154 MILLIGRAM ONCE
     Route: 040
     Dates: start: 20220526
  2. VENETOCLAX [Suspect]
     Active Substance: VENETOCLAX
     Indication: Plasma cell myeloma
     Dosage: 400 MILLIGRAM EVERY 1 DAYS
     Route: 048
     Dates: start: 20220526
  3. DEXAMETHASONE [Suspect]
     Active Substance: DEXAMETHASONE
     Indication: Plasma cell myeloma
     Dosage: 40 MILLIGRAM EVERY 1 WEEKS
     Route: 048
     Dates: start: 20220526
  4. ACYCLOVIR [Concomitant]
     Active Substance: ACYCLOVIR
     Indication: Antiviral prophylaxis
     Dosage: UNK
  5. AMLODIPINE [Concomitant]
     Active Substance: AMLODIPINE BESYLATE
     Indication: Hypertension
     Dosage: 5 MILLIGRAM, QD
     Dates: start: 20190528
  6. ATORVASTATIN [Concomitant]
     Active Substance: ATORVASTATIN
     Indication: Hyperlipidaemia
     Dosage: 40 MILLIGRAM, QD
     Dates: start: 20190920
  7. VITAMIN D2 [Concomitant]
     Active Substance: ERGOCALCIFEROL
     Indication: Nutritional supplementation
     Dosage: 5000 INTERNATIONAL UNIT, QWK
     Dates: start: 20170117
  8. LEVETIRACETAM CF [Concomitant]
     Indication: Seizure
     Dosage: 500 MILLIGRAM, 2/DAYS
     Dates: start: 20201109
  9. LEVOFLOXACIN [Concomitant]
     Active Substance: LEVOFLOXACIN
     Indication: Antibiotic prophylaxis
     Dosage: 500 MILLIGRAM, QD
     Dates: start: 20220525
  10. POTASSIUM CHLORIDE [Concomitant]
     Active Substance: POTASSIUM CHLORIDE
     Indication: Hypokalaemia
     Dosage: 20 MILLIEQUIVALENT, QD
     Dates: start: 20220219
  11. ALBUTEROL [Concomitant]
     Active Substance: ALBUTEROL
     Indication: Dyspnoea
     Dosage: 2 PUFFS/ EVERY 6 HOURS AS NECESSARY
     Dates: start: 20180301
  12. FLUTICASONE FUROATE\UMECLIDINIUM BROMIDE\VILANTEROL TRIFENATATE [Concomitant]
     Active Substance: FLUTICASONE FUROATE\UMECLIDINIUM BROMIDE\VILANTEROL TRIFENATATE
     Indication: Dyspnoea
     Dosage: 1 PUFF, EVERY 1 DAYS
     Dates: start: 20190721
  13. ATENOLOL [Concomitant]
     Active Substance: ATENOLOL
     Indication: Hypertension
     Dosage: 25 MILLIGRAM, QD
     Dates: start: 20220611
  14. SULFAMETHOXAZOLE\TRIMETHOPRIM [Concomitant]
     Active Substance: SULFAMETHOXAZOLE\TRIMETHOPRIM
     Indication: Antibiotic prophylaxis
     Dosage: 1 TABLET, 3/WEEKS
     Dates: start: 20220525
  15. Benz [Concomitant]
     Indication: Cough
     Dosage: 200 MILLIGRAM 3/DAYS
     Dates: start: 20220727

REACTIONS (2)
  - Vein disorder [Recovered/Resolved]
  - Obstruction [Recovered/Resolved]

NARRATIVE: CASE EVENT DATE: 20220922
